FAERS Safety Report 6863200-7 (Version None)
Quarter: 2010Q3

REPORT INFORMATION
  Report Type: 
  Country: None (occurrence: None)
  Receive Date: 20100701
  Receipt Date: 20100629
  Transmission Date: 20110219
  Serious: Yes (Hospitalization)
  Sender: FDA-Public Use
  Company Number: 2010023105

PATIENT
  Sex: Female
  Weight: 79.3795 kg

DRUGS (3)
  1. VIVAGLOBIN [Suspect]
     Indication: BLOOD IMMUNOGLOBULIN G DECREASED
     Dosage: BLOOD 3 SITES OVER 2 HOURS SUBCUTANEOUS)
     Route: 058
     Dates: start: 20100209
  2. VIVAGLOBIN [Suspect]
  3. VIVAGLOBIN [Suspect]

REACTIONS (8)
  - EMOTIONAL DISORDER [None]
  - INFUSION SITE ERYTHEMA [None]
  - INFUSION SITE PAIN [None]
  - INFUSION SITE PRURITUS [None]
  - INFUSION SITE SWELLING [None]
  - PUNCTURE SITE PAIN [None]
  - STRESS [None]
  - WEIGHT DECREASED [None]
